FAERS Safety Report 14328235 (Version 1)
Quarter: 2017Q4

REPORT INFORMATION
  Report Type: Spontaneous
  Country: US (occurrence: US)
  Receive Date: 20171227
  Receipt Date: 20171227
  Transmission Date: 20180321
  Serious: Yes (Hospitalization, Other)
  Sender: FDA-Public Use
  Company Number: US-ALK-ABELLO A/S-2017AA003957

PATIENT

DRUGS (1)
  1. STAE BULK 225 [Suspect]
     Active Substance: PHLEUM PRATENSE POLLEN
     Indication: SKIN TEST
     Dosage: UNK
     Dates: start: 20171106

REACTIONS (8)
  - Ear pain [None]
  - Hypersensitivity [Recovered/Resolved]
  - Middle ear effusion [None]
  - Dizziness [None]
  - Injection site urticaria [None]
  - Flushing [None]
  - Oropharyngeal pain [None]
  - Urticaria [None]

NARRATIVE: CASE EVENT DATE: 20171108
